FAERS Safety Report 24942115 (Version 2)
Quarter: 2025Q1

REPORT INFORMATION
  Report Type: Spontaneous
  Country: DE (occurrence: DE)
  Receive Date: 20250207
  Receipt Date: 20250310
  Transmission Date: 20250409
  Serious: Yes (Other)
  Sender: ELI LILLY AND COMPANY
  Company Number: DE-SANDOZ-SDZ2025DE004177

PATIENT

DRUGS (2)
  1. DULOXETINE HYDROCHLORIDE [Interacting]
     Active Substance: DULOXETINE HYDROCHLORIDE
     Indication: Product used for unknown indication
     Route: 065
  2. AMITRIPTYLINE HYDROCHLORIDE [Interacting]
     Active Substance: AMITRIPTYLINE HYDROCHLORIDE
     Indication: Product used for unknown indication
     Route: 065

REACTIONS (21)
  - Depression [Unknown]
  - Migraine [Unknown]
  - Pneumonitis [Unknown]
  - General physical health deterioration [Unknown]
  - Fibromyalgia [Unknown]
  - Serum serotonin increased [Unknown]
  - Cough [Unknown]
  - Emphysema [Unknown]
  - Fibrosis [Unknown]
  - Body temperature fluctuation [Unknown]
  - Anxiety disorder [Unknown]
  - Drug intolerance [Unknown]
  - Gait disturbance [Unknown]
  - Myalgia [Unknown]
  - Muscle spasms [Unknown]
  - Chills [Unknown]
  - Visual impairment [Unknown]
  - Somnolence [Unknown]
  - Disturbance in attention [Unknown]
  - Dizziness [Recovered/Resolved]
  - Drug interaction [Unknown]
